FAERS Safety Report 6194126-2 (Version None)
Quarter: 2009Q2

REPORT INFORMATION
  Report Type: 
  Country: None (occurrence: None)
  Receive Date: 20090518
  Receipt Date: 20090511
  Transmission Date: 20091009
  Serious: Yes (Hospitalization)
  Sender: FDA-Public Use
  Company Number: PHHY2009MX18327

PATIENT
  Age: 76 Year
  Sex: Female

DRUGS (6)
  1. ACLASTA [Suspect]
     Indication: OSTEOPOROSIS
     Dosage: 5 MG/100 ML
     Dates: start: 20080301
  2. SODIUM PICOSULFATE [Concomitant]
     Dosage: UNK
  3. RIVOTRIL [Concomitant]
  4. FLOTAC [Concomitant]
  5. ANTISTAX [Concomitant]
  6. ASPIRIN [Concomitant]

REACTIONS (6)
  - ABASIA [None]
  - CONSTIPATION [None]
  - PAIN IN EXTREMITY [None]
  - RENAL FAILURE ACUTE [None]
  - THROMBOSIS [None]
  - VASCULAR GRAFT [None]
